FAERS Safety Report 12305980 (Version 3)
Quarter: 2016Q2

REPORT INFORMATION
  Report Type: Report from Study
  Country: AT (occurrence: AT)
  Receive Date: 20160426
  Receipt Date: 20160618
  Transmission Date: 20160815
  Serious: Yes (Death)
  Sender: FDA-Public Use
  Company Number: AT-JNJFOC-20160420513

PATIENT
  Sex: Female
  Weight: 70 kg

DRUGS (2)
  1. TRABECTEDIN [Suspect]
     Active Substance: TRABECTEDIN
     Route: 042
  2. TRABECTEDIN [Suspect]
     Active Substance: TRABECTEDIN
     Indication: MENINGIOMA
     Dosage: CYCLE 3; ACTUAL DOSE GIVEN 2.54MG
     Route: 042
     Dates: start: 20160224, end: 20160407

REACTIONS (1)
  - Death [Fatal]
